FAERS Safety Report 5684859-6 (Version None)
Quarter: 2008Q1

REPORT INFORMATION
  Report Type: 
  Country: None (occurrence: None)
  Receive Date: 20080328
  Receipt Date: 19900809
  Transmission Date: 20080703
  Serious: Yes (Death)
  Sender: FDA-Public Use
  Company Number: CA-ROCHE-14553

PATIENT
  Age: 31 Year
  Sex: Male

DRUGS (3)
  1. CYTOVENE [Suspect]
     Route: 042
     Dates: start: 19890128, end: 19890210
  2. CYTOVENE [Suspect]
     Dosage: REINDUCTION
     Route: 042
     Dates: start: 19891228, end: 19900114
  3. CYTOVENE [Suspect]
     Dosage: REREDUCED MAINTENANCE THERAPY.
     Route: 042
     Dates: start: 19900114, end: 19900705

REACTIONS (1)
  - DEATH [None]
